FAERS Safety Report 4603181-X (Version None)
Quarter: 2005Q1

REPORT INFORMATION
  Report Type: 
  Country: None (occurrence: None)
  Receive Date: 20050304
  Receipt Date: 20050222
  Transmission Date: 20050727
  Serious: Yes (Hospitalization)
  Sender: FDA-Public Use
  Company Number: 04-01-0001

PATIENT
  Age: 87 Year
  Sex: Female

DRUGS (1)
  1. PROGLYCEM [Suspect]
     Indication: INSULINOMA
     Dosage: 100-25MG QD ORAL
     Route: 048
     Dates: start: 20000101, end: 20031127

REACTIONS (11)
  - BICYTOPENIA [None]
  - BLOOD PRESSURE ABNORMAL [None]
  - BONE MARROW DEPRESSION [None]
  - CHILLS [None]
  - CIRCULATORY COLLAPSE [None]
  - HYPOGLYCAEMIC COMA [None]
  - NEUTROPHIL COUNT DECREASED [None]
  - PANCYTOPENIA [None]
  - PLATELET COUNT DECREASED [None]
  - PYREXIA [None]
  - SEPSIS [None]
